FAERS Safety Report 7944838-2 (Version None)
Quarter: 2011Q4

REPORT INFORMATION
  Report Type: 
  Country: None (occurrence: None)
  Receive Date: 20111129
  Receipt Date: 20111118
  Transmission Date: 20120403
  Serious: Yes (Hospitalization, Other)
  Sender: FDA-Public Use
  Company Number: ES-PFIZER INC-2011284449

PATIENT
  Age: 60 Year
  Sex: Male

DRUGS (4)
  1. SINTROM [Concomitant]
  2. DIOVAN [Concomitant]
  3. DRONEDARONE [Suspect]
     Indication: ATRIAL FIBRILLATION
     Dosage: 200 MG EVERY 12 HOURS
     Route: 048
     Dates: start: 20101222, end: 20111021
  4. AMIODARONE HCL [Suspect]
     Indication: ATRIAL FIBRILLATION
     Dosage: UNK
     Route: 048
     Dates: start: 20111001

REACTIONS (7)
  - EJECTION FRACTION DECREASED [None]
  - OEDEMA [None]
  - ASPHYXIA [None]
  - CARDIOGENIC SHOCK [None]
  - PAIN [None]
  - CARDIAC FAILURE [None]
  - ACUTE PULMONARY OEDEMA [None]
